FAERS Safety Report 5283904-X (Version None)
Quarter: 2007Q1

REPORT INFORMATION
  Report Type: 
  Country: None (occurrence: None)
  Receive Date: 20070327
  Receipt Date: 20070319
  Transmission Date: 20070707
  Serious: Yes (Death)
  Sender: FDA-Public Use
  Company Number: 2007-01467

PATIENT
  Age: 62 Year

DRUGS (3)
  1. VERAPAMIL [Suspect]
  2. CHLORDIAZEPOXIDE/AMITRIPTYLINE HCL (UNKNOWN STRENGTH) (WATSON) (CHLORD [Suspect]
  3. ETHANOL (ETHANOL) [Suspect]

REACTIONS (1)
  - DEATH [None]
